FAERS Safety Report 14235575 (Version 1)
Quarter: 2017Q4

REPORT INFORMATION
  Report Type: Report from Study
  Country: JP (occurrence: JP)
  Receive Date: 20171129
  Receipt Date: 20171129
  Transmission Date: 20180321
  Serious: Yes (Other)
  Sender: FDA-Public Use
  Company Number: JP-CIPLA LTD.-2017JP21227

PATIENT

DRUGS (3)
  1. GEMCITABINE [Suspect]
     Active Substance: GEMCITABINE\GEMCITABINE HYDROCHLORIDE
     Indication: BILE DUCT CANCER
     Dosage: 1000 MG/M2 ON DAYS 1, 8 AND 15 EVERY 4 WEEKS
     Route: 042
  2. THERACURMIN [Suspect]
     Active Substance: CURCUMIN\DIETARY SUPPLEMENT
     Indication: BILE DUCT CANCER
     Dosage: 400 MG, DAILY (LEVEL 2)
     Route: 048
  3. GEMCITABINE [Suspect]
     Active Substance: GEMCITABINE\GEMCITABINE HYDROCHLORIDE
     Dosage: 1000 MG/M2, ON DAYS 1,8 AND 15 EVERY 4 WEEKS
     Route: 042

REACTIONS (2)
  - Treatment failure [Unknown]
  - Disease progression [Unknown]
